FAERS Safety Report 16465426 (Version 4)
Quarter: 2019Q3

REPORT INFORMATION
  Report Type: Report from Study
  Country: US (occurrence: US)
  Receive Date: 20190621
  Receipt Date: 20190718
  Transmission Date: 20191004
  Serious: Yes (Hospitalization, Other)
  Sender: FDA-Public Use
  Company Number: US-JNJFOC-20190617795

PATIENT
  Sex: Male

DRUGS (7)
  1. VENCLEXTA [Suspect]
     Active Substance: VENETOCLAX
     Route: 065
     Dates: start: 20190620
  2. VENCLEXTA [Suspect]
     Active Substance: VENETOCLAX
     Route: 065
     Dates: start: 20190605
  3. IMBRUVICA [Suspect]
     Active Substance: IBRUTINIB
     Dosage: 140 MG, QD
     Route: 048
     Dates: start: 20190305, end: 2019
  4. IMBRUVICA [Suspect]
     Active Substance: IBRUTINIB
     Dosage: 140 MG, QD
     Route: 048
     Dates: start: 20190613
  5. VENCLEXTA [Suspect]
     Active Substance: VENETOCLAX
     Indication: PRODUCT USED FOR UNKNOWN INDICATION
     Route: 065
  6. IMBRUVICA [Suspect]
     Active Substance: IBRUTINIB
     Indication: CHRONIC LYMPHOCYTIC LEUKAEMIA
     Dosage: 420 MG, QD
     Route: 048
     Dates: start: 20190304
  7. VENCLEXTA [Suspect]
     Active Substance: VENETOCLAX
     Route: 065
     Dates: start: 20190709

REACTIONS (5)
  - Platelet count decreased [Unknown]
  - White blood cell count decreased [Unknown]
  - Infection [Unknown]
  - Haemoglobin decreased [Unknown]
  - Red blood cell count increased [Unknown]
